FAERS Safety Report 10233894 (Version 3)
Quarter: 2014Q3

REPORT INFORMATION
  Report Type: Report from Study
  Country: FI (occurrence: FI)
  Receive Date: 20140612
  Receipt Date: 20140703
  Transmission Date: 20150326
  Serious: Yes (Hospitalization, Other)
  Sender: FDA-Public Use
  Company Number: PHHY2014FI050576

PATIENT
  Age: 56 Year
  Sex: Male

DRUGS (19)
  1. RISPERIDONE. [Concomitant]
     Active Substance: RISPERIDONE
     Indication: PSYCHOTIC DISORDER
     Dosage: 4 MG, DAILY (2 MG AT MORNING AND 2 MG IN THE EVENING)
  2. PARATABS [Concomitant]
     Dosage: UNK UKN, UNK
  3. GRANISETRON [Concomitant]
     Active Substance: GRANISETRON
     Dosage: UNK UKN, UNK
  4. PROPRANOLOL HYDROCHLORIDE. [Concomitant]
     Active Substance: PROPRANOLOL HYDROCHLORIDE
     Dosage: UNK
  5. TEMESTA [Concomitant]
     Active Substance: LORAZEPAM
     Indication: PSYCHOTIC DISORDER
     Dosage: 4 MG, DAILY (1MG IN THE MORNING, 2MG IN THE AFTERNOON AND 1 MG IN THE EVENING)
  6. LEVOZIN [Concomitant]
     Indication: PSYCHOTIC DISORDER
     Dosage: 50 MG, DAILY IN THE EVENING
  7. LEVOZIN [Concomitant]
     Dosage: 20 MG, PRN DAILY
  8. COLONSOFT [Concomitant]
     Dosage: UNK UKN, UNK
  9. ORMOX [Concomitant]
     Dosage: UNK UKN, UNK
  10. PREDNISOLON [Concomitant]
     Active Substance: PREDNISOLONE
     Dosage: UNK UKN, UNK
  11. LEPONEX [Suspect]
     Active Substance: CLOZAPINE
     Indication: SCHIZOPHRENIA
     Dosage: 500 MG, DAILY
  12. TENOX (TEMAZEPAM) [Concomitant]
     Indication: PSYCHOTIC DISORDER
     Dosage: 20 MG, PRN DAILY
  13. DIAPAM [Concomitant]
     Active Substance: DIAZEPAM
     Indication: PSYCHOTIC DISORDER
     Dosage: 5 MG, PRN DAILY
  14. SOMAC [Concomitant]
     Active Substance: PANTOPRAZOLE SODIUM
     Dosage: UNK UKN, UNK
  15. OXYCODONE [Concomitant]
     Active Substance: OXYCODONE
     Dosage: UNK UKN, UNK
  16. LEVOZIN [Concomitant]
     Dosage: 100 MG, IN THE EVENING AND 1 TO 3 TIMES 20 MG DAILY (MAX 60 MG)
     Dates: start: 201404
  17. ZYLORIC [Concomitant]
     Active Substance: ALLOPURINOL
     Dosage: UNK UKN, UNK
  18. DIAPAM [Concomitant]
     Active Substance: DIAZEPAM
     Dosage: 1 TO 3 TIMES 5 MG DAILY (MAX 15 MG).
     Dates: start: 201404
  19. CIPROXIN [Concomitant]
     Active Substance: CIPROFLOXACIN
     Dosage: UNK UKN, UNK

REACTIONS (19)
  - Mediastinum neoplasm [Not Recovered/Not Resolved]
  - Spinal column stenosis [Unknown]
  - Soft tissue disorder [Unknown]
  - Pleural effusion [Unknown]
  - Bone deformity [Unknown]
  - Intervertebral disc degeneration [Unknown]
  - Lymphadenopathy [Unknown]
  - Neoplasm [Not Recovered/Not Resolved]
  - Psychotic behaviour [Unknown]
  - Anxiety [Unknown]
  - Muscular weakness [Recovering/Resolving]
  - Musculoskeletal discomfort [Recovering/Resolving]
  - Gait disturbance [Recovering/Resolving]
  - Drug ineffective [Unknown]
  - Lymphoma [Not Recovered/Not Resolved]
  - Intervertebral disc space narrowing [Unknown]
  - Delusion [Unknown]
  - Tachycardia [Unknown]
  - Confusional state [Unknown]

NARRATIVE: CASE EVENT DATE: 20140412
